FAERS Safety Report 14700928 (Version 1)
Quarter: 2018Q1

REPORT INFORMATION
  Report Type: Spontaneous
  Country: US (occurrence: US)
  Receive Date: 20180330
  Receipt Date: 20180330
  Transmission Date: 20180509
  Serious: Yes (Hospitalization)
  Sender: FDA-Public Use
  Company Number: US-JNJFOC-20180334428

PATIENT
  Sex: Male

DRUGS (1)
  1. STELARA [Suspect]
     Active Substance: USTEKINUMAB
     Indication: PSORIASIS
     Route: 058
     Dates: start: 20160506

REACTIONS (6)
  - Intestinal obstruction [Unknown]
  - Vomiting [Unknown]
  - Aspiration [Unknown]
  - Pneumonia [Unknown]
  - Cardiac arrest [Unknown]
  - Malaise [Unknown]
